FAERS Safety Report 5210053-9 (Version None)
Quarter: 2006Q4

REPORT INFORMATION
  Report Type: 
  Country: None (occurrence: None)
  Receive Date: 20061127
  Receipt Date: 20060421
  Transmission Date: 20070319
  Serious: Yes (Other)
  Sender: FDA-Public Use
  Company Number: 2006BH008643

PATIENT
  Age: 46 Year
  Sex: Female
  Weight: 44.6339 kg

DRUGS (1)
  1. DIANEAL [Suspect]
     Indication: RENAL FAILURE CHRONIC
     Dosage: 6 L;IP
     Route: 033

REACTIONS (1)
  - PERITONITIS [None]
